FAERS Safety Report 9237314 (Version 8)
Quarter: 2013Q4

REPORT INFORMATION
  Report Type: Report from Study
  Country: CA (occurrence: CA)
  Receive Date: 20130417
  Receipt Date: 20131002
  Transmission Date: 20140711
  Serious: Yes (Hospitalization, Other)
  Sender: FDA-Public Use
  Company Number: CA-ALEXION-A201300815

PATIENT
  Age: 19 Year
  Sex: Female

DRUGS (5)
  1. SOLIRIS [Suspect]
     Indication: HAEMOLYTIC URAEMIC SYNDROME
     Dosage: 900 MG, QW
     Route: 042
     Dates: start: 20090825, end: 20090915
  2. SOLIRIS [Suspect]
     Dosage: 1200 MG, Q2W
     Route: 042
     Dates: start: 20090922, end: 20130508
  3. SOLIRIS [Suspect]
     Dosage: UNK
     Route: 042
     Dates: end: 20130605
  4. AMLODIPINE [Concomitant]
     Indication: HYPERTENSION
     Dosage: UNK
     Route: 048
     Dates: start: 1993
  5. FOSINOPRIL [Concomitant]
     Indication: HYPERTENSION
     Dosage: UNK
     Route: 048
     Dates: start: 1993

REACTIONS (5)
  - Bacterial infection [Not Recovered/Not Resolved]
  - Fungal infection [Not Recovered/Not Resolved]
  - Peritonitis [Not Recovered/Not Resolved]
  - Therapy change [Not Recovered/Not Resolved]
  - Abdominal pain [Recovered/Resolved]
